FAERS Safety Report 17346554 (Version 2)
Quarter: 2020Q3

REPORT INFORMATION
  Report Type: Report from Study
  Country: DO (occurrence: DO)
  Receive Date: 20200130
  Receipt Date: 20200811
  Transmission Date: 20201102
  Serious: Yes (Life-Threatening, Other)
  Sender: FDA-Public Use
  Company Number: NVSC2020DO019652

PATIENT
  Age: 67 Year
  Sex: Male

DRUGS (3)
  1. VYMADA [Suspect]
     Active Substance: SACUBITRIL\VALSARTAN
     Dosage: 100 MG, BID, (ONE YEAR AND A HALF AGO)
     Route: 065
  2. VYMADA [Suspect]
     Active Substance: SACUBITRIL\VALSARTAN
     Dosage: 100 MG, QD(ONE  YEAR AND A HALF AGO)
     Route: 065
  3. VYMADA [Suspect]
     Active Substance: SACUBITRIL\VALSARTAN
     Indication: OXYGEN CONSUMPTION
     Dosage: 100 MG, (ONE YEAR AGO)
     Route: 065

REACTIONS (12)
  - Dyspnoea [Unknown]
  - Respiratory failure [Unknown]
  - Skin lesion [Unknown]
  - Product use in unapproved indication [Unknown]
  - Memory impairment [Unknown]
  - Dysstasia [Unknown]
  - Gait disturbance [Unknown]
  - Speech disorder [Unknown]
  - Illness [Unknown]
  - Brain hypoxia [Unknown]
  - Asphyxia [Unknown]
  - Therapeutic response unexpected [Unknown]
